FAERS Safety Report 5223491-5 (Version None)
Quarter: 2007Q1

REPORT INFORMATION
  Report Type: 
  Country: None (occurrence: None)
  Receive Date: 20070125
  Receipt Date: 20070109
  Transmission Date: 20070707
  Serious: Yes (Hospitalization)
  Sender: FDA-Public Use
  Company Number: 8021033

PATIENT
  Age: 9 Month
  Sex: Male
  Weight: 8.2 kg

DRUGS (3)
  1. KEPPRA [Suspect]
     Indication: INFANTILE SPASMS
     Dosage: 1500 MG 2/D PO
     Route: 048
     Dates: start: 20061208, end: 20061201
  2. KEPPRA [Suspect]
     Indication: INFANTILE SPASMS
     Dosage: PO
     Route: 048
     Dates: start: 20061201
  3. L-CARNITINE [Concomitant]

REACTIONS (3)
  - AKATHISIA [None]
  - CONVULSION [None]
  - DEHYDRATION [None]
